FAERS Safety Report 5007518-1 (Version None)
Quarter: 2006Q2

REPORT INFORMATION
  Report Type: 
  Country: None (occurrence: None)
  Receive Date: 20060517
  Receipt Date: 20060508
  Transmission Date: 20061013
  Serious: Yes (Other)
  Sender: FDA-Public Use
  Company Number: 224819

PATIENT
  Age: 78 Year

DRUGS (1)
  1. RITUXAN [Suspect]
     Dates: start: 20050218

REACTIONS (1)
  - RENAL IMPAIRMENT [None]
